FAERS Safety Report 10150757 (Version 1)
Quarter: 2014Q2

REPORT INFORMATION
  Report Type: Spontaneous
  Country: US (occurrence: US)
  Receive Date: 20140502
  Receipt Date: 20140502
  Transmission Date: 20141212
  Serious: No
  Sender: FDA-Public Use
  Company Number: US-ASTRAZENECA-2013SE38753

PATIENT
  Age: 80 Year
  Sex: Female

DRUGS (4)
  1. PRILOSEC OTC [Suspect]
     Route: 048
  2. SUCRALFATE [Concomitant]
     Indication: DIZZINESS
  3. PERCRIBED IRON PILL [Concomitant]
  4. PAIN MEDICATION PERSCRIBED BY DOCTOR [Concomitant]

REACTIONS (2)
  - Nausea [Unknown]
  - Incorrect drug administration duration [Unknown]
